FAERS Safety Report 6385625-9 (Version None)
Quarter: 2009Q4

REPORT INFORMATION
  Report Type: 
  Country: None (occurrence: None)
  Receive Date: 20091002
  Receipt Date: 20081014
  Transmission Date: 20100525
  Serious: No
  Sender: FDA-Public Use
  Company Number: US-ASTRAZENECA-2008UW22603

PATIENT
  Age: 68 Year
  Sex: Female

DRUGS (4)
  1. ARIMIDEX [Suspect]
     Route: 048
     Dates: start: 20080916
  2. M.V.I. [Concomitant]
  3. LOVAZA [Concomitant]
  4. MAGNESIUM [Concomitant]

REACTIONS (3)
  - ASTHENOPIA [None]
  - NIGHT SWEATS [None]
  - VISUAL IMPAIRMENT [None]
